FAERS Safety Report 24668935 (Version 1)
Quarter: 2024Q4

REPORT INFORMATION
  Report Type: Spontaneous
  Country: DE (occurrence: DE)
  Receive Date: 20241127
  Receipt Date: 20241127
  Transmission Date: 20250115
  Serious: Yes (Hospitalization)
  Sender: GILEAD
  Company Number: DE-GILEAD-2024-0695195

PATIENT
  Sex: Male

DRUGS (1)
  1. GENVOYA [Suspect]
     Active Substance: COBICISTAT\ELVITEGRAVIR\EMTRICITABINE\TENOFOVIR ALAFENAMIDE FUMARATE
     Indication: Product used for unknown indication
     Dosage: 150 MG / 150 MG / 200 MG / 10 MG
     Route: 065

REACTIONS (3)
  - Dysphagia [Unknown]
  - Product dose omission issue [Unknown]
  - Product complaint [Unknown]
